FAERS Safety Report 11151092 (Version 2)
Quarter: 2015Q2

REPORT INFORMATION
  Report Type: Spontaneous
  Country: PT (occurrence: None)
  Receive Date: 20150528
  Receipt Date: 20150604
  Transmission Date: 20150821
  Serious: Yes (Life-Threatening, Hospitalization)
  Sender: FDA-Public Use
  Company Number: PT-H14001-15-00777

PATIENT
  Age: 49 Year
  Sex: Male

DRUGS (1)
  1. CEFAZOLINA (HIKMA) [Suspect]
     Active Substance: CEFAZOLIN
     Indication: ANTIBIOTIC PROPHYLAXIS
     Dosage: 1000 MG,TOTAL
     Route: 042
     Dates: start: 20150513, end: 20150513

REACTIONS (1)
  - Anaphylactic shock [None]

NARRATIVE: CASE EVENT DATE: 20150513
